FAERS Safety Report 25594748 (Version 2)
Quarter: 2025Q4

REPORT INFORMATION
  Report Type: Spontaneous
  Country: JP (occurrence: JP)
  Receive Date: 20250723
  Receipt Date: 20251030
  Transmission Date: 20260117
  Serious: Yes (Death, Hospitalization)
  Sender: NOVARTIS
  Company Number: JP-002147023-NVSJ2025JP006352

PATIENT
  Age: 78 Year
  Sex: Female

DRUGS (1)
  1. ENTRESTO [Suspect]
     Active Substance: SACUBITRIL\VALSARTAN
     Indication: Hypertension
     Dosage: 400 MG, QD
     Route: 048

REACTIONS (4)
  - Cerebral infarction [Fatal]
  - Concomitant disease aggravated [Fatal]
  - Myocardial infarction [Fatal]
  - Concomitant disease aggravated [Fatal]

NARRATIVE: CASE EVENT DATE: 20250613
